FAERS Safety Report 16049292 (Version 1)
Quarter: 2019Q1

REPORT INFORMATION
  Report Type: Report from Study
  Country: US (occurrence: US)
  Receive Date: 20190307
  Receipt Date: 20190307
  Transmission Date: 20190418
  Serious: Yes (Hospitalization)
  Sender: FDA-Public Use
  Company Number: US-PFIZER INC-2019094666

PATIENT
  Age: 69 Year
  Sex: Female

DRUGS (1)
  1. EFFEXOR XR [Suspect]
     Active Substance: VENLAFAXINE HYDROCHLORIDE
     Dosage: UNK

REACTIONS (6)
  - Mental disorder [Unknown]
  - Cardiac failure [Unknown]
  - Hypertension [Unknown]
  - Abnormal behaviour [Unknown]
  - Renal failure [Unknown]
  - Cardiac murmur [Unknown]
